FAERS Safety Report 7194373-7 (Version None)
Quarter: 2010Q4

REPORT INFORMATION
  Report Type: 
  Country: None (occurrence: None)
  Receive Date: 20101223
  Receipt Date: 20101217
  Transmission Date: 20110411
  Serious: Yes (Hospitalization)
  Sender: FDA-Public Use
  Company Number: US-ASTRAZENECA-2010SE59735

PATIENT
  Age: 33 Year
  Sex: Female
  Weight: 77.1 kg

DRUGS (4)
  1. SEROQUEL XR [Suspect]
     Indication: SCHIZOAFFECTIVE DISORDER
     Route: 048
     Dates: start: 20101206
  2. ABILIFY [Concomitant]
  3. TEGRETOL [Concomitant]
  4. XANAX [Concomitant]

REACTIONS (4)
  - BLOOD DISORDER [None]
  - HALLUCINATION, AUDITORY [None]
  - INCORRECT ROUTE OF DRUG ADMINISTRATION [None]
  - LEUKOPENIA [None]
